FAERS Safety Report 9671410 (Version 3)
Quarter: 2013Q4

REPORT INFORMATION
  Report Type: Spontaneous
  Country: IT (occurrence: IT)
  Receive Date: 20131106
  Receipt Date: 20131217
  Transmission Date: 20140711
  Serious: Yes (Hospitalization)
  Sender: FDA-Public Use
  Company Number: IT-PFIZER INC-2013314860

PATIENT
  Age: 52 Year
  Sex: Female

DRUGS (2)
  1. XANAX [Suspect]
     Dosage: 20 ML, UNK
     Route: 048
     Dates: start: 20131019, end: 20131019
  2. CITALOPRAM ABC [Suspect]
     Dosage: 15 ML, UNK
     Route: 048
     Dates: start: 20131019, end: 20131019

REACTIONS (6)
  - Drug abuse [Recovering/Resolving]
  - Sopor [Recovering/Resolving]
  - Speech disorder [Recovering/Resolving]
  - Bradykinesia [Recovering/Resolving]
  - Bradyphrenia [Recovering/Resolving]
  - Affective disorder [Recovering/Resolving]
